FAERS Safety Report 22879107 (Version 3)
Quarter: 2025Q4

REPORT INFORMATION
  Report Type: Spontaneous
  Country: AU (occurrence: AU)
  Receive Date: 20230829
  Receipt Date: 20251022
  Transmission Date: 20260118
  Serious: Yes (Other)
  Sender: MYLAN
  Company Number: AU-MYLANLABS-2023M1090747

PATIENT
  Sex: Male
  Weight: 88 kg

DRUGS (8)
  1. CLOZARIL [Suspect]
     Active Substance: CLOZAPINE
     Indication: Schizophrenia
     Dosage: 400 MILLIGRAM
  2. CLOZARIL [Suspect]
     Active Substance: CLOZAPINE
     Dosage: 450 MILLIGRAM, PM (NOCTE)
     Dates: start: 20230714
  3. VENLAFAXINE HYDROCHLORIDE [Concomitant]
     Active Substance: VENLAFAXINE HYDROCHLORIDE
     Dosage: 225 MILLIGRAM, AM (MANE)
  4. ATORVASTATIN [Concomitant]
     Active Substance: ATORVASTATIN
     Dosage: 20 MILLIGRAM, AM
  5. MOVICOL [Concomitant]
     Active Substance: POLYETHYLENE GLYCOL 3350\POTASSIUM CHLORIDE\SODIUM BICARBONATE\SODIUM CHLORIDE
     Dosage: 1 DOSAGE FORM, AM
  6. OLANZAPINE [Concomitant]
     Active Substance: OLANZAPINE
     Dosage: UNK, PRN (10-20 MG NOCTE PRN FOR SLEEP)
  7. DOCUSATE [Concomitant]
     Active Substance: DOCUSATE
     Dosage: 2 DOSAGE FORM, PRN (BD)
  8. SENNA [Concomitant]
     Active Substance: SENNOSIDES
     Dosage: 2 DOSAGE FORM, PRN (BD)

REACTIONS (4)
  - Substance abuse [Unknown]
  - Depression [Unknown]
  - Hypotension [Unknown]
  - Salivary hypersecretion [Not Recovered/Not Resolved]
